FAERS Safety Report 13513429 (Version 5)
Quarter: 2017Q4

REPORT INFORMATION
  Report Type: Spontaneous
  Country: JP (occurrence: JP)
  Receive Date: 20170504
  Receipt Date: 20171009
  Transmission Date: 20180320
  Serious: Yes (Death, Other)
  Sender: FDA-Public Use
  Company Number: JP-PFIZER INC-2017047750

PATIENT
  Age: 85 Year

DRUGS (2)
  1. XALKORI [Suspect]
     Active Substance: CRIZOTINIB
     Dosage: UNK
     Route: 048
  2. XALKORI [Suspect]
     Active Substance: CRIZOTINIB
     Indication: LUNG NEOPLASM MALIGNANT
     Dosage: 200 MG, UNK
     Route: 048
     Dates: start: 20170201

REACTIONS (8)
  - Lung disorder [Recovered/Resolved]
  - Liver disorder [Unknown]
  - Pneumonia aspiration [Unknown]
  - Hepatic function abnormal [Unknown]
  - Neoplasm progression [Fatal]
  - Diarrhoea [Unknown]
  - Condition aggravated [Unknown]
  - Dyspnoea [Unknown]

NARRATIVE: CASE EVENT DATE: 20170201
